FAERS Safety Report 4921324-5 (Version None)
Quarter: 2006Q1

REPORT INFORMATION
  Report Type: 
  Country: None (occurrence: None)
  Receive Date: 20060224
  Receipt Date: 20060213
  Transmission Date: 20060701
  Serious: Yes (Other)
  Sender: FDA-Public Use
  Company Number: PHBS2006PT02496

PATIENT
  Sex: Female

DRUGS (1)
  1. DICLOFENAC [Suspect]
     Route: 030

REACTIONS (4)
  - FACE OEDEMA [None]
  - OBSTRUCTIVE AIRWAYS DISORDER [None]
  - OEDEMA PERIPHERAL [None]
  - PRURITUS GENERALISED [None]
